FAERS Safety Report 10039389 (Version 9)
Quarter: 2014Q2

REPORT INFORMATION
  Report Type: Spontaneous
  Country: US (occurrence: US)
  Receive Date: 20140326
  Receipt Date: 20140522
  Transmission Date: 20141212
  Serious: Yes (Hospitalization, Other)
  Sender: FDA-Public Use
  Company Number: PHEH2011US013428

PATIENT
  Sex: Female

DRUGS (7)
  1. ZOMETA [Suspect]
     Indication: METASTASES TO BONE
     Route: 042
     Dates: start: 20020807, end: 20060310
  2. ZOMETA [Suspect]
     Indication: HYPERCALCAEMIA
  3. AREDIA [Suspect]
     Indication: METASTASES TO BONE
     Dosage: 90 MG, UNK
     Route: 042
  4. AREDIA [Suspect]
     Indication: HYPERCALCAEMIA
     Dosage: UNK UKN, UNK
     Route: 042
     Dates: start: 200604
  5. AREDIA [Suspect]
     Dosage: UNK UKN, UNK
     Route: 042
     Dates: start: 20060602, end: 20071016
  6. FEMARA [Concomitant]
  7. NEXIUM//ESOMEPRAZOLE MAGNESIUM [Concomitant]

REACTIONS (200)
  - Peroneal nerve palsy [Unknown]
  - Hemiparesis [Unknown]
  - Speech disorder [Unknown]
  - Coordination abnormal [Unknown]
  - Asthenia [Unknown]
  - Osteonecrosis of jaw [Unknown]
  - Pain [Unknown]
  - Infection [Unknown]
  - Deformity [Unknown]
  - Injury [Unknown]
  - Emotional distress [Unknown]
  - Swelling [Unknown]
  - Osteomyelitis [Unknown]
  - Primary sequestrum [Unknown]
  - Conjunctivitis [Unknown]
  - Tooth loss [Unknown]
  - Bone loss [Unknown]
  - Tooth fracture [Unknown]
  - Granuloma [Unknown]
  - Periodontitis [Unknown]
  - Dental caries [Unknown]
  - Epistaxis [Unknown]
  - Breast cancer [Unknown]
  - Parkinson^s disease [Unknown]
  - Traumatic ulcer [Unknown]
  - Cerebral atrophy [Unknown]
  - Microangiopathy [Unknown]
  - Lacunar infarction [Unknown]
  - Subdural hygroma [Unknown]
  - Cystitis [Unknown]
  - Urinary tract infection [Unknown]
  - Mental status changes [Unknown]
  - Cognitive disorder [Unknown]
  - Hypertension [Unknown]
  - Hypothyroidism [Unknown]
  - Gastrooesophageal reflux disease [Unknown]
  - Restless legs syndrome [Unknown]
  - Osteoarthritis [Unknown]
  - Left atrial dilatation [Unknown]
  - Sinus tachycardia [Unknown]
  - Cerebral ischaemia [Unknown]
  - Emphysema [Unknown]
  - Pulmonary fibrosis [Unknown]
  - Aortic calcification [Unknown]
  - Ventricular hypertrophy [Unknown]
  - Dental plaque [Unknown]
  - Reading disorder [Unknown]
  - Stress [Unknown]
  - Arthritis [Unknown]
  - Fistula [Unknown]
  - Incontinence [Unknown]
  - Transient ischaemic attack [Unknown]
  - Cerebral infarction [Unknown]
  - Cardiomegaly [Unknown]
  - Fall [Unknown]
  - Amnesia [Unknown]
  - Hyponatraemia [Unknown]
  - Somnolence [Unknown]
  - Dehydration [Unknown]
  - Dementia [Unknown]
  - Confusional state [Unknown]
  - Hypoxia [Unknown]
  - Deep vein thrombosis [Unknown]
  - Tricuspid valve incompetence [Unknown]
  - Insomnia [Unknown]
  - Haemorrhoids [Unknown]
  - Ataxia [Unknown]
  - Mass [Unknown]
  - Osteosclerosis [Unknown]
  - Bone lesion [Unknown]
  - Venous angioma of brain [Unknown]
  - Tremor [Unknown]
  - Hypertonic bladder [Unknown]
  - Anaemia [Unknown]
  - Intervertebral disc degeneration [Unknown]
  - Skin lesion [Unknown]
  - Spinal osteoarthritis [Unknown]
  - Intervertebral disc protrusion [Unknown]
  - Actinic keratosis [Unknown]
  - Rectal haemorrhage [Unknown]
  - Skin cancer [Unknown]
  - Cerebrovascular accident [Unknown]
  - Metastases to bone [Unknown]
  - Hallucination [Unknown]
  - Respiratory failure [Unknown]
  - Cholelithiasis [Unknown]
  - Dementia Alzheimer^s type [Unknown]
  - Arteriosclerosis [Unknown]
  - Arthropathy [Unknown]
  - Seborrhoeic dermatitis [Unknown]
  - Peptic ulcer [Unknown]
  - Metastases to lymph nodes [Unknown]
  - Metastases to spine [Unknown]
  - Hypersomnia [Unknown]
  - Cataract [Unknown]
  - Chronic obstructive pulmonary disease [Unknown]
  - Depression [Unknown]
  - Vertebral osteophyte [Unknown]
  - Dyspnoea [Unknown]
  - Vascular calcification [Unknown]
  - Renal cyst [Unknown]
  - Aortic disorder [Unknown]
  - Blepharitis [Unknown]
  - Rib fracture [Unknown]
  - Scoliosis [Unknown]
  - Intervertebral disc disorder [Unknown]
  - Pleural effusion [Unknown]
  - Pericardial effusion [Unknown]
  - Diverticulum intestinal [Unknown]
  - Rectal polyp [Unknown]
  - Spinal deformity [Unknown]
  - Intervertebral disc space narrowing [Unknown]
  - Mastoiditis [Unknown]
  - Atelectasis [Unknown]
  - Polyneuropathy [Unknown]
  - Spinal column stenosis [Unknown]
  - Pleural fibrosis [Unknown]
  - Pleural calcification [Unknown]
  - Vertebral foraminal stenosis [Unknown]
  - Spondylolisthesis [Unknown]
  - Rib deformity [Unknown]
  - Dizziness [Unknown]
  - Cerumen impaction [Unknown]
  - Fistula discharge [Unknown]
  - Gingival erythema [Unknown]
  - Spinal compression fracture [Unknown]
  - Lumbar radiculopathy [Unknown]
  - Osteoradionecrosis [Unknown]
  - Basal ganglion degeneration [Unknown]
  - Psychotic disorder [Unknown]
  - Torticollis [Unknown]
  - Kyphoscoliosis [Unknown]
  - Cachexia [Unknown]
  - Cholecystitis [Unknown]
  - Dysarthria [Unknown]
  - Sleep apnoea syndrome [Unknown]
  - Bradykinesia [Unknown]
  - Dysphonia [Unknown]
  - Pathological fracture [Unknown]
  - Furuncle [Unknown]
  - Nocturia [Unknown]
  - Abscess jaw [Unknown]
  - Lymphadenopathy [Unknown]
  - Gallbladder disorder [Unknown]
  - Hyperlipidaemia [Unknown]
  - Failure to thrive [Unknown]
  - Breast cancer metastatic [Unknown]
  - Orthostatic hypotension [Unknown]
  - Hypokalaemia [Unknown]
  - Hepatic cyst [Unknown]
  - Aortic arteriosclerosis [Unknown]
  - Anxiety [Unknown]
  - Gastritis [Unknown]
  - Cerebral small vessel ischaemic disease [Unknown]
  - Diplopia [Unknown]
  - Encephalopathy [Unknown]
  - Mitral valve calcification [Unknown]
  - Aortic valve sclerosis [Unknown]
  - Aortic valve incompetence [Unknown]
  - Lung hyperinflation [Unknown]
  - Joint range of motion decreased [Unknown]
  - Muscle spasms [Unknown]
  - Nephrolithiasis [Unknown]
  - Cataract nuclear [Unknown]
  - Visual acuity reduced [Unknown]
  - Pollakiuria [Unknown]
  - Saccadic eye movement [Unknown]
  - Masked facies [Unknown]
  - Corneal reflex decreased [Unknown]
  - Cogwheel rigidity [Unknown]
  - Hearing impaired [Unknown]
  - Disturbance in attention [Unknown]
  - Aphonia [Unknown]
  - Urinary incontinence [Unknown]
  - Kyphosis [Unknown]
  - Balance disorder [Unknown]
  - Visual impairment [Unknown]
  - Local swelling [Unknown]
  - Middle ear effusion [Unknown]
  - Deafness neurosensory [Unknown]
  - Basal ganglia infarction [Unknown]
  - Lung disorder [Unknown]
  - Salivary hypersecretion [Unknown]
  - Motor dysfunction [Unknown]
  - Micrographia [Unknown]
  - Movement disorder [Unknown]
  - Malignant melanoma [Unknown]
  - Second primary malignancy [Unknown]
  - Basal cell carcinoma [Unknown]
  - Wound [Unknown]
  - Knee deformity [Unknown]
  - Paranasal sinus hypersecretion [Unknown]
  - Joint crepitation [Unknown]
  - Protrusion tongue [Unknown]
  - Disability [Unknown]
  - Dyskinesia [Unknown]
  - Squamous cell carcinoma [Unknown]
  - Large intestine polyp [Unknown]
  - Blood urine present [Unknown]
  - Protein urine present [Unknown]
